FAERS Safety Report 12346381 (Version 1)
Quarter: 2016Q2

REPORT INFORMATION
  Report Type: Spontaneous
  Country: US (occurrence: None)
  Receive Date: 20160506
  Receipt Date: 20160506
  Transmission Date: 20160815
  Serious: Yes (Other)
  Sender: FDA-Public Use
  Company Number: None

PATIENT
  Age: 64 Year
  Sex: Female
  Weight: 88 kg

DRUGS (1)
  1. HYLAND^S LEG CRAMPS [Suspect]
     Active Substance: HOMEOPATHICS
     Indication: MUSCLE SPASMS

REACTIONS (1)
  - Hepatitis [None]

NARRATIVE: CASE EVENT DATE: 20160405
